FAERS Safety Report 23098811 (Version 1)
Quarter: 2023Q4

REPORT INFORMATION
  Report Type: Spontaneous
  Country: KR (occurrence: KR)
  Receive Date: 20231024
  Receipt Date: 20231024
  Transmission Date: 20240109
  Serious: Yes (Hospitalization, Other)
  Sender: FDA-Public Use
  Company Number: KR-002147023-PHBS2007KR10278

PATIENT
  Age: 59 Year
  Sex: Female

DRUGS (4)
  1. CARBAMAZEPINE [Suspect]
     Active Substance: CARBAMAZEPINE
     Indication: Neck pain
     Dosage: UNK
     Route: 065
  2. GABAPENTIN [Concomitant]
     Active Substance: GABAPENTIN
     Indication: Neck pain
     Dosage: UNK
     Route: 065
  3. MELOXICAM [Concomitant]
     Active Substance: MELOXICAM
     Indication: Neck pain
     Dosage: UNK
     Route: 065
  4. CIMETIDINE [Concomitant]
     Active Substance: CIMETIDINE
     Indication: Neck pain
     Dosage: UNK
     Route: 065

REACTIONS (3)
  - Drug reaction with eosinophilia and systemic symptoms [Recovered/Resolved]
  - Epstein-Barr virus infection reactivation [Unknown]
  - Product use in unapproved indication [Unknown]
